FAERS Safety Report 19805982 (Version 1)
Quarter: 2021Q3

REPORT INFORMATION
  Report Type: Spontaneous
  Country: US (occurrence: US)
  Receive Date: 20210908
  Receipt Date: 20210908
  Transmission Date: 20211014
  Serious: No
  Sender: FDA-Public Use
  Company Number: US-ASTELLAS-2021US017758

PATIENT
  Age: 83 Year
  Sex: Male

DRUGS (1)
  1. XTANDI [Suspect]
     Active Substance: ENZALUTAMIDE
     Indication: PROSTATE CANCER
     Route: 048
     Dates: start: 2019

REACTIONS (4)
  - Impatience [Not Recovered/Not Resolved]
  - Ageusia [Not Recovered/Not Resolved]
  - Product physical issue [Unknown]
  - Product storage error [Unknown]

NARRATIVE: CASE EVENT DATE: 2020
